FAERS Safety Report 10023194 (Version 1)
Quarter: 2014Q1

REPORT INFORMATION
  Report Type: Spontaneous
  Country: DE (occurrence: DE)
  Receive Date: 20140320
  Receipt Date: 20140320
  Transmission Date: 20141002
  Serious: Yes (Hospitalization)
  Sender: FDA-Public Use
  Company Number: DE-BIOGENIDEC-2014BI024716

PATIENT
  Age: 39 Year
  Sex: Female

DRUGS (1)
  1. AVONEX [Suspect]
     Indication: MULTIPLE SCLEROSIS
     Route: 030
     Dates: start: 20101001

REACTIONS (4)
  - Nephrolithiasis [Recovered/Resolved]
  - Nephritis [Recovered/Resolved]
  - Urinary tract inflammation [Recovered/Resolved]
  - Multiple sclerosis relapse [Recovered/Resolved]
